FAERS Safety Report 5321424-4 (Version None)
Quarter: 2007Q2

REPORT INFORMATION
  Report Type: 
  Country: None (occurrence: None)
  Receive Date: 20070510
  Receipt Date: 20070430
  Transmission Date: 20071010
  Serious: Yes (Hospitalization, Other)
  Sender: FDA-Public Use
  Company Number: HQWYE708402AUG04

PATIENT
  Sex: Female
  Weight: 54.48 kg

DRUGS (1)
  1. PREMPRO [Suspect]

REACTIONS (1)
  - BREAST CANCER METASTATIC [None]
